FAERS Safety Report 7668543-5 (Version None)
Quarter: 2011Q3

REPORT INFORMATION
  Report Type: 
  Country: None (occurrence: None)
  Receive Date: 20110803
  Receipt Date: 20110728
  Transmission Date: 20111222
  Serious: Yes (Hospitalization)
  Sender: FDA-Public Use
  Company Number: ACO_26093_2011

PATIENT
  Age: 58 Year
  Sex: Female

DRUGS (2)
  1. GILENYA [Suspect]
     Indication: PRODUCT USED FOR UNKNOWN INDICATION
     Dates: start: 20110405, end: 20110713
  2. AMPYRA [Suspect]
     Indication: GAIT DISTURBANCE
     Dosage: 10 MG, BID
     Dates: start: 20100323

REACTIONS (2)
  - JAUNDICE [None]
  - URINARY TRACT INFECTION [None]
